FAERS Safety Report 5091511-7 (Version None)
Quarter: 2006Q3

REPORT INFORMATION
  Report Type: 
  Country: None (occurrence: None)
  Receive Date: 20060824
  Receipt Date: 20060811
  Transmission Date: 20061208
  Serious: Yes (Hospitalization, Other)
  Sender: FDA-Public Use
  Company Number: 2006AP000606

PATIENT
  Age: 69 Year
  Sex: Male

DRUGS (8)
  1. AMIODARONE HCL [Suspect]
     Indication: ARRHYTHMIA
     Dosage: 200 MG;QD;PO
     Route: 048
  2. ASPIRIN [Concomitant]
  3. LANSOPRAZOLE [Concomitant]
  4. LEVOTHYROXINE SODIUM [Concomitant]
  5. METHOCARBAMOL [Concomitant]
  6. METOPROLOL TARTRATE [Concomitant]
  7. OXYCODONE HCL [Concomitant]
  8. RISPERIDONE [Concomitant]

REACTIONS (6)
  - ASTHENIA [None]
  - CARDIAC MURMUR [None]
  - COUGH [None]
  - CREPITATIONS [None]
  - PULMONARY ALVEOLAR HAEMORRHAGE [None]
  - WEIGHT DECREASED [None]
